FAERS Safety Report 9717580 (Version 1)
Quarter: 2013Q4

REPORT INFORMATION
  Report Type: Spontaneous
  Country: NL (occurrence: NL)
  Receive Date: 20131127
  Receipt Date: 20131127
  Transmission Date: 20140711
  Serious: Yes (Other)
  Sender: FDA-Public Use
  Company Number: NL-PFIZER INC-2013338504

PATIENT
  Age: 49 Year
  Sex: Male
  Weight: 80 kg

DRUGS (2)
  1. ATORVASTATIN CALCIUM [Suspect]
     Indication: TYPE IIA HYPERLIPIDAEMIA
     Dosage: 20 MG, ONCE DAILY
     Dates: start: 20050101, end: 20050401
  2. ASCAL CARDIO [Concomitant]
     Dosage: 100 MG, ONCE DAILY
     Dates: start: 20050101

REACTIONS (1)
  - Rheumatoid arthritis [Recovered/Resolved]
